FAERS Safety Report 5906460-9 (Version None)
Quarter: 2008Q4

REPORT INFORMATION
  Report Type: 
  Country: None (occurrence: None)
  Receive Date: 20081002
  Receipt Date: 20080923
  Transmission Date: 20090506
  Serious: Yes (Hospitalization, Other)
  Sender: FDA-Public Use
  Company Number: BE-WYE-G02224508

PATIENT
  Age: 62 Year
  Sex: Female

DRUGS (1)
  1. CYCLOSPORINE [Suspect]
     Dosage: NOT PROVIDED
     Dates: start: 20060427

REACTIONS (1)
  - MALIGNANT MELANOMA [None]
